FAERS Safety Report 12696038 (Version 3)
Quarter: 2016Q3

REPORT INFORMATION
  Report Type: Spontaneous
  Country: US (occurrence: US)
  Receive Date: 20160829
  Receipt Date: 20160921
  Transmission Date: 20161109
  Serious: Yes (Hospitalization)
  Sender: FDA-Public Use
  Company Number: US-RELYPSA-RLY2016002092

PATIENT
  Age: 81 Year
  Sex: Male

DRUGS (19)
  1. VELTASSA [Suspect]
     Active Substance: PATIROMER
     Indication: HYPERKALAEMIA
     Dosage: 8.4 G, QD
     Route: 048
     Dates: start: 20160722
  2. FUROSEMIDE. [Concomitant]
     Active Substance: FUROSEMIDE
  3. HYDRALAZINE HCL [Concomitant]
     Active Substance: HYDRALAZINE HYDROCHLORIDE
  4. LACTULOSE. [Concomitant]
     Active Substance: LACTULOSE
  5. CARVEDILOL. [Concomitant]
     Active Substance: CARVEDILOL
  6. MIRTAZAPINE. [Concomitant]
     Active Substance: MIRTAZAPINE
  7. SIMETHICONE (DIMETHICONE) [Concomitant]
     Active Substance: DIMETHICONE
  8. CLOPIDOGREL BISULFATE. [Concomitant]
     Active Substance: CLOPIDOGREL BISULFATE
  9. CEPHALEXIN. [Concomitant]
     Active Substance: CEPHALEXIN
  10. OYSTER SHELL CACIUM WITH VITAMIN D [Concomitant]
  11. FOLIC ACID. [Concomitant]
     Active Substance: FOLIC ACID
  12. SENNA LAXATIVE [Concomitant]
     Active Substance: SENNOSIDES
  13. TAMSULOSIN HCL [Concomitant]
     Active Substance: TAMSULOSIN
  14. CITALOPRAM HYDROBROMIDE. [Concomitant]
     Active Substance: CITALOPRAM HYDROBROMIDE
  15. VITAMIN B12 [Concomitant]
     Active Substance: CYANOCOBALAMIN
  16. RANITIDINE HCL [Concomitant]
     Active Substance: RANITIDINE HYDROCHLORIDE
  17. TYLENOL [Concomitant]
     Active Substance: ACETAMINOPHEN
  18. OMEPRAZOLE. [Concomitant]
     Active Substance: OMEPRAZOLE
  19. NOVOLIN [Concomitant]
     Active Substance: INSULIN HUMAN

REACTIONS (2)
  - Medication error [Unknown]
  - Hospitalisation [Unknown]

NARRATIVE: CASE EVENT DATE: 20160824
